FAERS Safety Report 4307509-X (Version None)
Quarter: 2004Q1

REPORT INFORMATION
  Report Type: 
  Country: None (occurrence: None)
  Receive Date: 20040226
  Receipt Date: 20040216
  Transmission Date: 20041129
  Serious: No
  Sender: FDA-Public Use
  Company Number: 04P-167-0250530-00

PATIENT
  Age: 49 Year
  Sex: Female
  Weight: 79.4 kg

DRUGS (6)
  1. HUMIRA [Suspect]
     Dosage: 40 MG, 1 IN 2 WK, SUBCUTANEOUS
     Route: 058
  2. LEFLUNOMIDE (LEFLUNOMIDE) [Suspect]
     Indication: RHEUMATOID ARTHRITIS
     Dosage: 20 MG, PER ORAL
     Route: 048
     Dates: start: 20010301, end: 20031101
  3. ALENDRONATE SODIUM [Concomitant]
  4. LEVOTHYROXINE SODIUM [Concomitant]
  5. TRAMADOL [Concomitant]
  6. CELECOXIB [Concomitant]

REACTIONS (2)
  - DRUG INTERACTION [None]
  - NEUTROPENIA [None]
